FAERS Safety Report 7801499-0 (Version None)
Quarter: 2011Q4

REPORT INFORMATION
  Report Type: 
  Country: None (occurrence: None)
  Receive Date: 20111005
  Receipt Date: 20110926
  Transmission Date: 20120403
  Serious: Yes (Other)
  Sender: FDA-Public Use
  Company Number: AUR-APL-2011-05262

PATIENT
  Age: 62 Year
  Sex: Male
  Weight: 61 kg

DRUGS (7)
  1. BUSPIRONE HCL [Suspect]
     Indication: BIPOLAR DISORDER
     Dosage: 30 MG (30 MG,3 IN 1 D),ORAL
     Route: 048
     Dates: start: 20080101
  2. CITALOPRAM HYDROBROMIDE [Suspect]
     Indication: BIPOLAR DISORDER
     Dosage: (60 MG,1 D),ORAL ; (40 MG,1 D),ORAL
     Route: 048
     Dates: start: 20080101
  3. SILDENAFIL CITRATE [Suspect]
     Indication: LOSS OF LIBIDO
     Dosage: (100 MG),ORAL
     Route: 048
     Dates: start: 20110101
  4. VARDENAFIL (VARDENAFIL) [Suspect]
     Indication: LOSS OF LIBIDO
     Dosage: ORAL
     Route: 048
     Dates: start: 20110101
  5. PRAVASTATIN [Suspect]
     Indication: BLOOD CHOLESTEROL INCREASED
     Dosage: (40 MG,1 D),ORAL
     Route: 048
  6. GABAPENTIN [Suspect]
     Indication: BIPOLAR DISORDER
     Dosage: 600 MG (200 MG,3 IN 1 D),ORAL
     Route: 048
     Dates: start: 20080101
  7. CLONAZEPAM [Suspect]
     Indication: BIPOLAR DISORDER
     Dosage: 3 MG (1 MG,3 IN 1 D),ORAL
     Route: 048
     Dates: start: 20080101

REACTIONS (4)
  - BLOOD CHOLESTEROL INCREASED [None]
  - LOSS OF LIBIDO [None]
  - FEELING ABNORMAL [None]
  - DRUG INEFFECTIVE [None]
